FAERS Safety Report 9725661 (Version 1)
Quarter: 2013Q4

REPORT INFORMATION
  Report Type: Spontaneous
  Country: US (occurrence: None)
  Receive Date: 20131202
  Receipt Date: 20131202
  Transmission Date: 20140711
  Serious: Yes (Disabling)
  Sender: FDA-Public Use
  Company Number: None

PATIENT
  Age: 74 Year
  Sex: Female
  Weight: 74.39 kg

DRUGS (1)
  1. POTASSIUM CHLORIDE [Suspect]
     Indication: HYPOKALAEMIA
     Route: 048
     Dates: start: 20130917, end: 20131107

REACTIONS (8)
  - Oral pain [None]
  - Excoriation [None]
  - Laryngeal disorder [None]
  - Retching [None]
  - Pain [None]
  - Oropharyngeal pain [None]
  - Product physical issue [None]
  - Product quality issue [None]
